FAERS Safety Report 12372197 (Version 1)
Quarter: 2016Q2

REPORT INFORMATION
  Report Type: Spontaneous
  Country: IT (occurrence: IT)
  Receive Date: 20160516
  Receipt Date: 20160516
  Transmission Date: 20160815
  Serious: Yes (Other)
  Sender: FDA-Public Use
  Company Number: IT-ASTRAZENECA-2016SE50724

PATIENT
  Age: 56 Year
  Sex: Male

DRUGS (1)
  1. MEROPENEM. [Suspect]
     Active Substance: MEROPENEM
     Indication: ANTIBIOTIC THERAPY
     Route: 042

REACTIONS (4)
  - Tachycardia [Unknown]
  - Bundle branch block right [Unknown]
  - Pulmonary arterial pressure increased [Unknown]
  - Pericardial effusion [Unknown]
